FAERS Safety Report 4847574-4 (Version None)
Quarter: 2005Q4

REPORT INFORMATION
  Report Type: 
  Country: None (occurrence: None)
  Receive Date: 20051205
  Receipt Date: 20051125
  Transmission Date: 20060501
  Serious: Yes (Hospitalization)
  Sender: FDA-Public Use
  Company Number: 2005-11-1534

PATIENT
  Age: 37 Year
  Sex: Female
  Weight: 61 kg

DRUGS (4)
  1. PEG-INTRON [Suspect]
     Indication: HEPATITIS C
     Dosage: 80 MCG QWK SUBCUTANEOUS
     Route: 058
     Dates: start: 20050818
  2. REBETOL [Suspect]
     Indication: HEPATITIS C
     Dosage: 800 MG QD* ORAL
     Route: 048
     Dates: start: 20050818, end: 20051123
  3. REBETOL [Suspect]
     Indication: HEPATITIS C
     Dosage: 800 MG QD* ORAL
     Route: 048
     Dates: start: 20050818
  4. REBETOL [Suspect]
     Indication: HEPATITIS C
     Dosage: 800 MG QD* ORAL
     Route: 048
     Dates: start: 20051130

REACTIONS (2)
  - ECCHYMOSIS [None]
  - INTERNATIONAL NORMALISED RATIO INCREASED [None]
